FAERS Safety Report 6236540-2 (Version None)
Quarter: 2009Q2

REPORT INFORMATION
  Report Type: 
  Country: None (occurrence: None)
  Receive Date: 20090619
  Receipt Date: 20090616
  Transmission Date: 20091009
  Serious: Yes (Hospitalization)
  Sender: FDA-Public Use
  Company Number: B0578266A

PATIENT
  Sex: Male

DRUGS (8)
  1. ONDANSETRON HCL [Suspect]
     Indication: NAUSEA
     Dosage: 8MG CYCLIC
     Route: 042
     Dates: start: 20090514, end: 20090523
  2. IDARAC [Suspect]
     Indication: PAIN
     Dosage: 400MG PER DAY
     Route: 048
     Dates: start: 20090514, end: 20090516
  3. PRIMPERAN [Suspect]
     Indication: NAUSEA
     Dosage: 1AMP AS REQUIRED
     Route: 042
     Dates: start: 20090515, end: 20090525
  4. SPASFON [Suspect]
     Indication: ABDOMINAL PAIN
     Route: 042
     Dates: start: 20090517, end: 20090518
  5. NEUPOGEN [Suspect]
     Indication: BONE MARROW FAILURE
     Dosage: 300MCG PER DAY
     Route: 042
     Dates: start: 20090514, end: 20090523
  6. CYTARABINE [Suspect]
     Indication: ACUTE MYELOID LEUKAEMIA
     Dosage: 970MG CYCLIC
     Route: 042
     Dates: start: 20090514, end: 20090523
  7. CERUBIDINE [Suspect]
     Indication: ACUTE MYELOID LEUKAEMIA
     Dosage: 116MG CYCLIC
     Route: 042
     Dates: start: 20090514, end: 20090523
  8. ROCEPHIN [Concomitant]
     Indication: FEBRILE BONE MARROW APLASIA
     Dosage: 2G PER DAY
     Route: 042
     Dates: start: 20090510

REACTIONS (2)
  - LEUKOCYTOCLASTIC VASCULITIS [None]
  - PURPURA [None]
